FAERS Safety Report 10070763 (Version 2)
Quarter: 2014Q2

REPORT INFORMATION
  Report Type: Report from Study
  Country: US (occurrence: US)
  Receive Date: 20140410
  Receipt Date: 20140414
  Transmission Date: 20141212
  Serious: Yes (Other)
  Sender: FDA-Public Use
  Company Number: US-BAXTER-2014BAX017042

PATIENT
  Age: 61 Year
  Sex: Female

DRUGS (6)
  1. GAMMAGARD LIQUID [Suspect]
     Indication: IMMUNODEFICIENCY COMMON VARIABLE
     Route: 042
     Dates: start: 2006
  2. XOLAIR [Concomitant]
     Indication: ASTHMA
     Route: 058
     Dates: start: 2005
  3. SYMBICORT [Concomitant]
     Indication: ASTHMA
     Dosage: 160/4.25; 2 PUFFS
     Route: 055
     Dates: start: 2005
  4. SINGULAR [Concomitant]
     Indication: SEASONAL ALLERGY
     Route: 048
  5. CLARITINE [Concomitant]
     Indication: SEASONAL ALLERGY
     Route: 048
  6. THEOPHYLLINE [Concomitant]
     Indication: ASTHMA
     Route: 048
     Dates: start: 2005

REACTIONS (3)
  - Bronchitis [Recovered/Resolved]
  - Sinusitis [Recovered/Resolved]
  - Therapy cessation [Unknown]
